FAERS Safety Report 9504613 (Version 1)
Quarter: 2013Q3

REPORT INFORMATION
  Report Type: Spontaneous
  Country: OM (occurrence: OM)
  Receive Date: 20130906
  Receipt Date: 20130906
  Transmission Date: 20140515
  Serious: Yes (Hospitalization)
  Sender: FDA-Public Use
  Company Number: OM-MYLANLABS-2013S1019256

PATIENT
  Age: 66 Year
  Sex: Female

DRUGS (7)
  1. DIGOXIN [Suspect]
     Route: 065
  2. FUROSEMIDE [Suspect]
     Route: 065
  3. SPIRONOLACTONE [Suspect]
     Route: 065
  4. CARVEDILOL [Concomitant]
     Route: 065
  5. LISINOPRIL [Concomitant]
     Route: 065
  6. METFORMIN [Concomitant]
     Route: 065
  7. CALCIUM [Concomitant]
     Indication: SUPPLEMENTATION THERAPY
     Route: 065

REACTIONS (4)
  - Hypomagnesaemia [Recovered/Resolved]
  - Supraventricular tachycardia [Recovered/Resolved]
  - Atrial tachycardia [Recovered/Resolved]
  - Toxicity to various agents [Recovered/Resolved]
